FAERS Safety Report 26178103 (Version 1)
Quarter: 2025Q4

REPORT INFORMATION
  Report Type: Spontaneous
  Country: JP (occurrence: JP)
  Receive Date: 20251219
  Receipt Date: 20251219
  Transmission Date: 20260117
  Serious: Yes (Death, Life-Threatening, Hospitalization, Other)
  Sender: MICRO LABS LIMITED
  Company Number: JP-MICRO LABS LIMITED-ML2025-06622

PATIENT
  Sex: Female
  Weight: 2.72 kg

DRUGS (5)
  1. SODIUM NITROPRUSSIDE [Suspect]
     Active Substance: SODIUM NITROPRUSSIDE
     Indication: Increased ventricular afterload
     Dosage: HIGH-DOSE SNP WAS ADMINISTERED AT A MEAN DOSE OF 5.4 ?G/KG/MIN FOR 8 DAYS TO REDUCE AFTERLOAD
  2. SODIUM NITROPRUSSIDE [Suspect]
     Active Substance: SODIUM NITROPRUSSIDE
     Indication: Hypertension
  3. MILRINONE [Concomitant]
     Active Substance: MILRINONE
     Indication: Hypertension
  4. CARPERITIDE [Concomitant]
     Active Substance: CARPERITIDE
     Indication: Hypertension
  5. CHLORPROMAZINE [Concomitant]
     Active Substance: CHLORPROMAZINE
     Indication: Hypertension

REACTIONS (3)
  - Arrhythmia [Fatal]
  - Toxicity to various agents [Unknown]
  - Lactic acidosis [Unknown]
